FAERS Safety Report 4424949-9 (Version None)
Quarter: 2004Q3

REPORT INFORMATION
  Report Type: 
  Country: None (occurrence: None)
  Receive Date: 20040719
  Receipt Date: 20030211
  Transmission Date: 20050211
  Serious: Yes (Other)
  Sender: FDA-Public Use
  Company Number: 169731

PATIENT
  Age: 50 Year
  Sex: Female

DRUGS (3)
  1. AVONEX [Suspect]
     Indication: MULTIPLE SCLEROSIS
     Dates: start: 20020501, end: 20030113
  2. VITAMINS NOS [Concomitant]
  3. HERBAL REMEDIES [Concomitant]

REACTIONS (8)
  - ACNE [None]
  - ARTHRALGIA [None]
  - BACK PAIN [None]
  - CHILLS [None]
  - CONGESTIVE CARDIOMYOPATHY [None]
  - MENORRHAGIA [None]
  - MENSTRUATION IRREGULAR [None]
  - PYREXIA [None]
